FAERS Safety Report 4509657-8 (Version None)
Quarter: 2004Q4

REPORT INFORMATION
  Report Type: 
  Country: None (occurrence: None)
  Receive Date: 20041124
  Receipt Date: 20041119
  Transmission Date: 20050328
  Serious: Yes (Hospitalization)
  Sender: FDA-Public Use
  Company Number: 200421509GDDC

PATIENT
  Age: 11 Year
  Sex: Male

DRUGS (1)
  1. DESMOSPRAY [Suspect]
     Indication: ENURESIS
     Route: 045
     Dates: start: 20030201

REACTIONS (5)
  - AMNESIA [None]
  - CARDIAC ARREST [None]
  - CONVULSION [None]
  - HYPONATRAEMIA [None]
  - NERVOUS SYSTEM DISORDER [None]
